FAERS Safety Report 11218202 (Version 3)
Quarter: 2015Q3

REPORT INFORMATION
  Report Type: Spontaneous
  Country: BG (occurrence: BG)
  Receive Date: 20150625
  Receipt Date: 20150911
  Transmission Date: 20151125
  Serious: Yes (Other)
  Sender: FDA-Public Use
  Company Number: BG-ROCHE-1597619

PATIENT
  Sex: Male

DRUGS (2)
  1. MOVALIS [Concomitant]
     Active Substance: MELOXICAM
     Dosage: MOVALIS ORAL DAILY
     Route: 048
  2. ROACTEMRA [Suspect]
     Active Substance: TOCILIZUMAB
     Indication: RHEUMATOID ARTHRITIS
     Dosage: TOCILIZUMAB 600 MG I.V. ONCE MONTHLY
     Route: 042
     Dates: start: 201406, end: 201505

REACTIONS (2)
  - Tuberculosis [Recovering/Resolving]
  - Arthropathy [Recovering/Resolving]

NARRATIVE: CASE EVENT DATE: 201506
